FAERS Safety Report 6970966-4 (Version None)
Quarter: 2010Q3

REPORT INFORMATION
  Report Type: 
  Country: None (occurrence: None)
  Receive Date: 20100908
  Receipt Date: 20100902
  Transmission Date: 20110219
  Serious: Yes (Death)
  Sender: FDA-Public Use
  Company Number: US-GILEAD-2010-0031404

PATIENT
  Sex: Female

DRUGS (8)
  1. LETAIRIS [Suspect]
     Indication: PULMONARY ARTERIAL HYPERTENSION
     Route: 048
     Dates: start: 20100722
  2. FUROSEMIDE [Concomitant]
  3. HYDRALAZINE [Concomitant]
  4. PREDNISONE [Concomitant]
  5. LEVOTHYROXINE [Concomitant]
  6. POTASSIUM CHLORIDE [Concomitant]
  7. TYLENOL W/ CODEINE [Concomitant]
  8. GLIPIZIDE [Concomitant]

REACTIONS (1)
  - DEATH [None]
